FAERS Safety Report 5003278-9 (Version None)
Quarter: 2006Q2

REPORT INFORMATION
  Report Type: 
  Country: None (occurrence: None)
  Receive Date: 20060508
  Receipt Date: 20031230
  Transmission Date: 20061013
  Serious: Yes (Other)
  Sender: FDA-Public Use
  Company Number: HQWYE010426APR06

PATIENT
  Age: 15 Year
  Sex: Male

DRUGS (2)
  1. REFACTO [Suspect]
     Indication: FACTOR VIII DEFICIENCY
     Dosage: 2000 IU ROUTINE PROPHYLAXIS (FREQUENCY NOT REPORTED)
  2. REFACTO [Suspect]
     Indication: PROPHYLAXIS
     Dosage: 2000 IU ROUTINE PROPHYLAXIS (FREQUENCY NOT REPORTED)

REACTIONS (2)
  - DRUG INEFFECTIVE [None]
  - HAEMORRHAGE [None]
